FAERS Safety Report 15319520 (Version 2)
Quarter: 2019Q1

REPORT INFORMATION
  Report Type: Report from Study
  Country: US (occurrence: US)
  Receive Date: 20180827
  Receipt Date: 20190211
  Transmission Date: 20190417
  Serious: Yes (Hospitalization)
  Sender: FDA-Public Use
  Company Number: US-BIOVITRUM-2018US1011

PATIENT
  Age: 38 Year
  Sex: Male
  Weight: 88 kg

DRUGS (4)
  1. KINERET [Suspect]
     Active Substance: ANAKINRA
     Indication: PERICARDITIS
     Route: 058
     Dates: start: 20180805, end: 20180807
  2. KINERET [Suspect]
     Active Substance: ANAKINRA
     Route: 058
     Dates: start: 20180810
  3. COLCHICINE. [Concomitant]
     Active Substance: COLCHICINE
     Indication: PERICARDITIS
     Route: 048
     Dates: start: 20180805
  4. IBUPROFEN. [Concomitant]
     Active Substance: IBUPROFEN
     Indication: PERICARDITIS
     Route: 048
     Dates: start: 20180805

REACTIONS (1)
  - Thrombophlebitis [Recovered/Resolved]

NARRATIVE: CASE EVENT DATE: 20180808
